FAERS Safety Report 17930738 (Version 1)
Quarter: 2020Q2

REPORT INFORMATION
  Report Type: Other
  Country: CA (occurrence: CA)
  Receive Date: 20200623
  Receipt Date: 20200623
  Transmission Date: 20200714
  Serious: Yes (Hospitalization, Other)
  Sender: FDA-Public Use
  Company Number: CA-VALIDUS PHARMACEUTICALS LLC-CA-2020VAL000499

PATIENT

DRUGS (8)
  1. OCTREOTIDE. [Suspect]
     Active Substance: OCTREOTIDE
     Indication: NEUROENDOCRINE CARCINOMA
     Dosage: 100 ?G, TOTAL
     Route: 058
  2. OCTREOTIDE. [Suspect]
     Active Substance: OCTREOTIDE
     Dosage: 30 MG, QM (POWDER)
     Route: 030
  3. TYLENOL [Concomitant]
     Active Substance: ACETAMINOPHEN
     Indication: PRODUCT USED FOR UNKNOWN INDICATION
     Dosage: UNK
  4. LASIX [Suspect]
     Active Substance: FUROSEMIDE
     Indication: PRODUCT USED FOR UNKNOWN INDICATION
     Dosage: UNK
     Route: 065
  5. OCTREOTIDE. [Suspect]
     Active Substance: OCTREOTIDE
     Indication: NEUROENDOCRINE CARCINOMA
     Dosage: 30 MG, QM
     Route: 030
  6. OCTREOTIDE. [Suspect]
     Active Substance: OCTREOTIDE
     Dosage: 30 MG, QM
     Route: 030
  7. OCTREOTIDE. [Suspect]
     Active Substance: OCTREOTIDE
     Dosage: 60 MG, QM
     Route: 030
  8. OCTREOTIDE. [Suspect]
     Active Substance: OCTREOTIDE
     Dosage: 60 MG, QM
     Route: 030

REACTIONS (14)
  - Cardiac failure congestive [Unknown]
  - Blood pressure diastolic decreased [Unknown]
  - Blood pressure increased [Unknown]
  - Malaise [Unknown]
  - Fatigue [Unknown]
  - Dehydration [Unknown]
  - Diarrhoea [Unknown]
  - Vision blurred [Unknown]
  - Dizziness [Unknown]
  - Abdominal discomfort [Unknown]
  - Headache [Unknown]
  - Pain [Unknown]
  - Blood pressure fluctuation [Unknown]
  - Product container issue [Unknown]
